FAERS Safety Report 9657754 (Version 1)
Quarter: 2013Q4

REPORT INFORMATION
  Report Type: Spontaneous
  Country: JP (occurrence: JP)
  Receive Date: 20131030
  Receipt Date: 20131030
  Transmission Date: 20140711
  Serious: Yes (Hospitalization)
  Sender: FDA-Public Use
  Company Number: JP-SA-2013SA106759

PATIENT
  Age: 27 Year
  Sex: Female

DRUGS (9)
  1. PACLITAXEL [Suspect]
     Indication: BREAST CANCER STAGE IV
     Dosage: ON DAYS 1, 8 AND 15; FORM: INFUSION
     Route: 065
     Dates: start: 2012
  2. PACLITAXEL [Suspect]
     Indication: BREAST CANCER STAGE IV
     Dosage: ON DAYS 1, 8 AND 15; FORM: INFUSION
     Route: 065
     Dates: start: 2012
  3. CARBOPLATIN [Suspect]
     Indication: BREAST CANCER STAGE IV
     Dosage: DOSE: AUC: 6; ON DAY 1
     Route: 065
     Dates: start: 201201
  4. DOCETAXEL [Suspect]
     Indication: BREAST CANCER STAGE IV
     Dosage: ON DAY 1
     Route: 065
     Dates: start: 201201
  5. BEVACIZUMAB [Suspect]
     Indication: BREAST CANCER STAGE IV
     Dosage: ON DAYS 1 AND 15; FORM: INFUSION
     Route: 065
     Dates: start: 2012
  6. BEVACIZUMAB [Suspect]
     Indication: BREAST CANCER STAGE IV
     Dosage: ON DAYS 1 AND 15; FORM: INFUSION
     Route: 065
     Dates: start: 2012
  7. TRASTUZUMAB [Suspect]
     Indication: BREAST CANCER STAGE IV
     Dosage: ON DAYS 1, 8 AND 15
     Route: 065
     Dates: start: 201201
  8. VINORELBINE [Concomitant]
     Indication: BREAST CANCER STAGE IV
     Dosage: ON DAYS 1 AND 8
  9. ERIBULIN MESILATE [Concomitant]
     Indication: BREAST CANCER STAGE IV
     Dates: start: 201204

REACTIONS (6)
  - Skin erosion [Not Recovered/Not Resolved]
  - Breast ulceration [Not Recovered/Not Resolved]
  - Breast pain [Not Recovered/Not Resolved]
  - Breast necrosis [Not Recovered/Not Resolved]
  - Tumour haemorrhage [Recovered/Resolved]
  - Decreased appetite [Unknown]
